FAERS Safety Report 14717877 (Version 1)
Quarter: 2018Q2

REPORT INFORMATION
  Report Type: Spontaneous
  Country: US (occurrence: US)
  Receive Date: 20180404
  Receipt Date: 20180404
  Transmission Date: 20180711
  Serious: No
  Sender: FDA-Public Use
  Company Number: US-SA-2018SA034468

PATIENT
  Age: 73 Year
  Sex: Female

DRUGS (1)
  1. DUPIXENT [Suspect]
     Active Substance: DUPILUMAB
     Indication: DERMATITIS ATOPIC
     Route: 058
     Dates: start: 20170526, end: 20171228

REACTIONS (4)
  - Myalgia [Unknown]
  - Asthenia [Unknown]
  - Fatigue [Unknown]
  - Eye infection [Unknown]

NARRATIVE: CASE EVENT DATE: 20170730
